FAERS Safety Report 18490121 (Version 3)
Quarter: 2022Q1

REPORT INFORMATION
  Report Type: Report from Study
  Country: FR (occurrence: FR)
  Receive Date: 20201111
  Receipt Date: 20220111
  Transmission Date: 20220423
  Serious: Yes (Death, Hospitalization, Other)
  Sender: FDA-Public Use
  Company Number: NVSC2020FR301751

PATIENT
  Age: 80 Year
  Sex: Female
  Weight: 48 kg

DRUGS (5)
  1. CAPMATINIB [Suspect]
     Active Substance: CAPMATINIB
     Indication: Adenocarcinoma
     Dosage: 400 MG (MORNING AND EVENING)
     Route: 048
     Dates: start: 20200605, end: 20200731
  2. CAPMATINIB [Suspect]
     Active Substance: CAPMATINIB
     Indication: Gene mutation
     Dosage: 200 MG
     Route: 048
     Dates: start: 20200810
  3. RAMIPRIL [Concomitant]
     Active Substance: RAMIPRIL
     Indication: Hypertension
     Dosage: 5 MG, QD (START DATE: LONG STANDING)
     Route: 048
  4. PAROXETINE HYDROCHLORIDE [Concomitant]
     Active Substance: PAROXETINE HYDROCHLORIDE
     Indication: Depression
     Dosage: 10 MG, QD (START DATE: LONG STANDING)
     Route: 048
  5. LEVOTHYROXINE [Concomitant]
     Active Substance: LEVOTHYROXINE
     Indication: Hypothyroidism
     Dosage: 75 UG, QD (START DATE: LONG STANDING)
     Route: 048

REACTIONS (7)
  - Death [Fatal]
  - Dehydration [Unknown]
  - Diarrhoea [Unknown]
  - Hepatic cytolysis [Recovered/Resolved]
  - Decreased appetite [Unknown]
  - Pyrexia [Unknown]
  - Oedema peripheral [Unknown]

NARRATIVE: CASE EVENT DATE: 20200701
